FAERS Safety Report 8192565-1 (Version None)
Quarter: 2012Q1

REPORT INFORMATION
  Report Type: 
  Country: None (occurrence: None)
  Receive Date: 20120308
  Receipt Date: 20120227
  Transmission Date: 20120608
  Serious: Yes (Hospitalization)
  Sender: FDA-Public Use
  Company Number: US-AMGEN-USASP2012012670

PATIENT
  Age: 57 Year
  Sex: Female

DRUGS (1)
  1. ENBREL [Suspect]
     Indication: RHEUMATOID ARTHRITIS
     Dosage: 25 MG, QWK
     Dates: start: 19990901

REACTIONS (6)
  - MOBILITY DECREASED [None]
  - JOINT SWELLING [None]
  - CELLULITIS [None]
  - KNEE ARTHROPLASTY [None]
  - OEDEMA PERIPHERAL [None]
  - STAPHYLOCOCCAL INFECTION [None]
